FAERS Safety Report 6537804-5 (Version None)
Quarter: 2010Q1

REPORT INFORMATION
  Report Type: 
  Country: None (occurrence: None)
  Receive Date: 20100114
  Receipt Date: 20100106
  Transmission Date: 20100710
  Serious: Yes (Other)
  Sender: FDA-Public Use
  Company Number: JP-PFIZER INC-2010003494

PATIENT

DRUGS (1)
  1. ZYVOX [Suspect]

REACTIONS (1)
  - HALLUCINATION [None]
